FAERS Safety Report 9894055 (Version 1)
Quarter: 2014Q1

REPORT INFORMATION
  Report Type: Spontaneous
  Country: US (occurrence: US)
  Receive Date: 20140213
  Receipt Date: 20140213
  Transmission Date: 20141002
  Serious: No
  Sender: FDA-Public Use
  Company Number: US-PFIZER INC-2014039908

PATIENT
  Age: 71 Year
  Sex: Male
  Weight: 95.24 kg

DRUGS (1)
  1. LYRICA [Suspect]
     Indication: FACIAL PAIN
     Dosage: 200 MG, 3X/DAY

REACTIONS (2)
  - Off label use [Unknown]
  - Pain [Unknown]
